FAERS Safety Report 7265570-7 (Version None)
Quarter: 2011Q1

REPORT INFORMATION
  Report Type: 
  Country: None (occurrence: None)
  Receive Date: 20110131
  Receipt Date: 20110124
  Transmission Date: 20110831
  Serious: Yes (Hospitalization)
  Sender: FDA-Public Use
  Company Number: US-B.I. PHARMACEUTICALS,INC./RIDGEFIELD-2011-BP-01567BP

PATIENT
  Age: 70 Year
  Sex: Female

DRUGS (5)
  1. ASA [Suspect]
  2. LOVENOX [Suspect]
  3. COUMADIN [Concomitant]
  4. ACTIVASE [Concomitant]
     Indication: EMBOLIC STROKE
  5. PRADAXA [Suspect]
     Indication: ATRIAL FIBRILLATION
     Dosage: 300 MG
     Route: 048

REACTIONS (1)
  - HAEMORRHAGE INTRACRANIAL [None]
